FAERS Safety Report 11426646 (Version 1)
Quarter: 2015Q3

REPORT INFORMATION
  Report Type: Spontaneous
  Country: US (occurrence: US)
  Receive Date: 20150821
  Receipt Date: 20150821
  Transmission Date: 20151125
  Serious: No
  Sender: FDA-Public Use
  Company Number: US-ELI_LILLY_AND_COMPANY-US201304005430

PATIENT
  Sex: Female

DRUGS (4)
  1. HUMULIN R [Suspect]
     Active Substance: INSULIN HUMAN
     Indication: DIABETES MELLITUS
     Dosage: 4 U, TID
     Route: 058
     Dates: start: 20130108
  2. HUMULIN R [Suspect]
     Active Substance: INSULIN HUMAN
     Dosage: 15 U, TID
     Route: 058
  3. HUMULIN N [Suspect]
     Active Substance: INSULIN HUMAN
     Indication: DIABETES MELLITUS
     Dosage: 16 U, EACH EVENING
     Route: 058
     Dates: start: 20130108
  4. HUMULIN N [Suspect]
     Active Substance: INSULIN HUMAN
     Dosage: 36 U, EACH EVENING
     Route: 058

REACTIONS (5)
  - Drug ineffective [Unknown]
  - Malaise [Unknown]
  - Blood glucose increased [Unknown]
  - Fall [Recovered/Resolved]
  - Dizziness [Recovered/Resolved]
